FAERS Safety Report 10737833 (Version 1)
Quarter: 2015Q1

REPORT INFORMATION
  Report Type: Spontaneous
  Country: CN (occurrence: None)
  Receive Date: 20150122
  Receipt Date: 20150122
  Transmission Date: 20150721
  Serious: Yes (Other)
  Sender: FDA-Public Use
  Company Number: CN-2014VAL000359

PATIENT
  Age: 55 Year
  Sex: Male

DRUGS (1)
  1. LOTENSIN [Suspect]
     Active Substance: BENAZEPRIL HYDROCHLORIDE
     Indication: HYPERTENSION
     Route: 048
     Dates: start: 20110801, end: 20140828

REACTIONS (3)
  - Product quality issue [None]
  - Blood pressure increased [None]
  - No therapeutic response [None]

NARRATIVE: CASE EVENT DATE: 20120801
